FAERS Safety Report 14879052 (Version 2)
Quarter: 2018Q4

REPORT INFORMATION
  Report Type: Spontaneous
  Country: US (occurrence: US)
  Receive Date: 20180511
  Receipt Date: 20181228
  Transmission Date: 20190204
  Serious: No
  Sender: FDA-Public Use
  Company Number: US-SA-2017SA149205

PATIENT
  Age: 70 Year
  Sex: Male

DRUGS (3)
  1. APIDRA [Suspect]
     Active Substance: INSULIN GLULISINE
     Dosage: 20 U, QD
  2. APIDRA [Suspect]
     Active Substance: INSULIN GLULISINE
     Indication: TYPE 1 DIABETES MELLITUS
     Dosage: 20 U, QD
     Route: 058
     Dates: start: 201707
  3. HUMALOG [Concomitant]
     Active Substance: INSULIN LISPRO
     Dosage: UNK UNK,UNK
     Route: 065

REACTIONS (5)
  - Blood glucose increased [Recovered/Resolved]
  - Product storage error [Unknown]
  - Gait disturbance [Unknown]
  - Expired product administered [Unknown]
  - Product quality issue [Unknown]

NARRATIVE: CASE EVENT DATE: 2017
